FAERS Safety Report 22808789 (Version 2)
Quarter: 2024Q1

REPORT INFORMATION
  Report Type: Spontaneous
  Country: BE (occurrence: BE)
  Receive Date: 20230810
  Receipt Date: 20240305
  Transmission Date: 20240410
  Serious: Yes (Hospitalization, Other)
  Sender: FDA-Public Use
  Company Number: BE-GRINDPROD-2023003071

PATIENT
  Age: 82 Year
  Sex: Female
  Weight: 59.6 kg

DRUGS (9)
  1. RITUXIMAB [Suspect]
     Active Substance: RITUXIMAB
     Indication: Follicular lymphoma
     Dosage: 622 MG, 375 MG/SQ. METER) FOR 5 CYCLES
     Route: 042
     Dates: start: 20230404
  2. RITUXIMAB [Suspect]
     Active Substance: RITUXIMAB
     Dosage: 623 MG
     Route: 042
     Dates: start: 20230626
  3. RITUXIMAB [Suspect]
     Active Substance: RITUXIMAB
     Dosage: 622 MG
     Route: 042
     Dates: start: 20230724
  4. LENALIDOMIDE [Suspect]
     Active Substance: LENALIDOMIDE
     Indication: Follicular lymphoma
     Dosage: 10 MG, DAILY, ON DAYS 1 TO 21
     Route: 048
     Dates: start: 20230404, end: 20230709
  5. PRIVIGEN [Concomitant]
     Active Substance: HUMAN IMMUNOGLOBULIN G
     Dosage: UNK
     Dates: start: 20221027
  6. ALENDRONIC ACID [Concomitant]
     Active Substance: ALENDRONIC ACID
     Dosage: UNK
     Dates: start: 20230405
  7. CETIRIZINE HYDROCHLORIDE [Concomitant]
     Active Substance: CETIRIZINE HYDROCHLORIDE
     Dosage: UNK
     Dates: start: 20230411
  8. MAGNESIUM CITRATE [Concomitant]
     Active Substance: MAGNESIUM CITRATE
     Dosage: UNK
  9. ROSUVASTATIN [Concomitant]
     Active Substance: ROSUVASTATIN
     Dosage: UNK
     Dates: start: 20230405

REACTIONS (1)
  - Deep vein thrombosis [Recovered/Resolved]

NARRATIVE: CASE EVENT DATE: 20230710
